FAERS Safety Report 15851549 (Version 4)
Quarter: 2019Q1

REPORT INFORMATION
  Report Type: Spontaneous
  Country: US (occurrence: US)
  Receive Date: 20190122
  Receipt Date: 20190228
  Transmission Date: 20190417
  Serious: Yes (Hospitalization, Other)
  Sender: FDA-Public Use
  Company Number: US-HORIZON-PRO-0012-2019

PATIENT
  Age: 2 Year
  Sex: Female

DRUGS (10)
  1. CALCITROL [Concomitant]
     Active Substance: CALCITRIOL
  2. CARNITINE [Concomitant]
     Active Substance: CARNITINE
  3. PROCYSBI [Suspect]
     Active Substance: CYSTEAMINE BITARTRATE
     Indication: CYSTINOSIS
     Dosage: 375 MG (5 X 75 MG CAPSULES) EVERY 12 HOURS.
     Dates: start: 20170404
  4. INDOMETHACIN. [Concomitant]
     Active Substance: INDOMETHACIN
  5. VITAMIN D [Concomitant]
     Active Substance: CHOLECALCIFEROL
  6. IRON [Concomitant]
     Active Substance: IRON
  7. BICITRA [Concomitant]
     Active Substance: CITRIC ACID, 1-STEARYL ESTER\SODIUM CITRATE
  8. NEUTRA-PHOS [Concomitant]
     Active Substance: POTASSIUM PHOSPHATE, DIBASIC\POTASSIUM PHOSPHATE, MONOBASIC\SODIUM PHOSPHATE, DIBASIC\SODIUM PHOSPHATE, MONOBASIC
  9. CALCIUM CARBONATE. [Concomitant]
     Active Substance: CALCIUM CARBONATE
  10. POLYCITRA K [Concomitant]

REACTIONS (5)
  - Vomiting [Unknown]
  - Failure to thrive [Not Recovered/Not Resolved]
  - Gastroenteritis norovirus [Unknown]
  - Product supply issue [Unknown]
  - Therapy cessation [Unknown]
